FAERS Safety Report 6066619-X (Version None)
Quarter: 2009Q1

REPORT INFORMATION
  Report Type: 
  Country: None (occurrence: None)
  Receive Date: 20090205
  Receipt Date: 20090202
  Transmission Date: 20090719
  Serious: Yes (Death)
  Sender: FDA-Public Use
  Company Number: B0557317A

PATIENT
  Age: 20 Year
  Sex: Female
  Weight: 58 kg

DRUGS (6)
  1. LAMIVUDINE [Suspect]
     Indication: PROPHYLAXIS AGAINST HIV INFECTION
     Dosage: 300MG PER DAY
     Route: 048
     Dates: start: 20081010, end: 20081105
  2. STAVUDINE [Suspect]
     Indication: PROPHYLAXIS AGAINST HIV INFECTION
     Dosage: 30MG TWICE PER DAY
     Route: 048
     Dates: start: 20081010, end: 20081105
  3. COMBIVIR [Suspect]
     Indication: PROPHYLAXIS AGAINST HIV INFECTION
     Route: 048
     Dates: start: 20080908, end: 20081009
  4. EFAVIRENZ [Suspect]
     Indication: PROPHYLAXIS AGAINST HIV INFECTION
     Dosage: 600MG PER DAY
     Route: 048
     Dates: start: 20080908, end: 20081105
  5. AMOXICILLIN + CLAVULANATE POTASSIUM [Concomitant]
     Indication: UPPER RESPIRATORY TRACT INFECTION
  6. COTRIM [Concomitant]
     Dates: end: 20081010

REACTIONS (2)
  - DEATH [None]
  - NEUTROPENIA [None]
